FAERS Safety Report 18212058 (Version 1)
Quarter: 2020Q3

REPORT INFORMATION
  Report Type: Spontaneous
  Country: DE (occurrence: DE)
  Receive Date: 20200831
  Receipt Date: 20200831
  Transmission Date: 20201103
  Serious: Yes (Hospitalization, Other)
  Sender: FDA-Public Use
  Company Number: DE-AUROBINDO-AUR-APL-2020-045247

PATIENT
  Age: 36 Year
  Sex: Male
  Weight: 97 kg

DRUGS (3)
  1. LEVETIRACETAM. [Suspect]
     Active Substance: LEVETIRACETAM
     Indication: PRODUCT USED FOR UNKNOWN INDICATION
     Dosage: UNK
     Route: 065
  2. BRIVARACETAM [Suspect]
     Active Substance: BRIVARACETAM
     Indication: EPILEPSY
     Dosage: 100 MILLIGRAM, TWO TIMES A DAY (200 MG, DAILY)
     Route: 048
     Dates: start: 20160415, end: 20170209
  3. MESUXIMIDE [Suspect]
     Active Substance: METHSUXIMIDE
     Indication: EPILEPSY
     Dosage: UNK UNK, TWO TIMES A DAY (750?0?600 MG)
     Route: 048
     Dates: start: 2013

REACTIONS (2)
  - Thrombocytopenia [Not Recovered/Not Resolved]
  - Hospitalisation [Recovered/Resolved]

NARRATIVE: CASE EVENT DATE: 2016
